FAERS Safety Report 10094106 (Version 3)
Quarter: 2014Q2

REPORT INFORMATION
  Report Type: Report from Study
  Country: US (occurrence: US)
  Receive Date: 20140422
  Receipt Date: 20140616
  Transmission Date: 20141212
  Serious: Yes (Hospitalization)
  Sender: FDA-Public Use
  Company Number: US-ROCHE-1031137

PATIENT
  Age: 76 Year
  Sex: Male
  Weight: 76.7 kg

DRUGS (29)
  1. OBINUTUZUMAB [Suspect]
     Indication: B-CELL LYMPHOMA
     Dosage: DATE OF MOST RECENT DOSE: 29/DEC/2011 (DOSE: 250 ML AND CONCENTRATION: 4MG/ML).
     Route: 042
     Dates: start: 20111215
  2. BENDAMUSTINE [Suspect]
     Indication: B-CELL LYMPHOMA
     Dosage: DATE OF MOST RECENT DOSE OF BENDAMUSTINE: 16/DEC/2011. (177.3 MG)
     Route: 042
     Dates: start: 20111215
  3. PREDNISONE [Suspect]
     Indication: B-CELL LYMPHOMA
     Dosage: LAST DOSE PRIOR TO SAE:29/DEC/2011, LAST DOSE 100 MG
     Route: 048
  4. MICARDIS [Concomitant]
     Indication: BLOOD PRESSURE
     Route: 065
     Dates: end: 20120116
  5. METOPROLOL TARTRATE [Concomitant]
     Indication: BLOOD PRESSURE
     Route: 065
     Dates: end: 20120117
  6. VYTORIN [Concomitant]
     Indication: BLOOD CHOLESTEROL
     Route: 065
     Dates: end: 20120116
  7. ASPIR 81 [Concomitant]
     Indication: HYPERTENSION
     Route: 065
     Dates: end: 20120130
  8. VITAMIN C [Concomitant]
     Indication: VITAMIN SUPPLEMENTATION
     Route: 065
     Dates: end: 20120130
  9. OMEGA 3 FATTY ACIDS [Concomitant]
     Indication: PHYTOTHERAPY
     Route: 065
     Dates: end: 20120130
  10. LORATADINE [Concomitant]
     Indication: RHINITIS ALLERGIC
     Route: 065
     Dates: end: 20120130
  11. FLUTICASONE PROPIONATE [Concomitant]
     Indication: RHINITIS ALLERGIC
     Route: 065
     Dates: end: 20120130
  12. ALLOPURINOL [Concomitant]
     Indication: HYPERURICAEMIA
     Route: 065
     Dates: end: 20120111
  13. ACETAMINOPHEN [Concomitant]
     Indication: PYREXIA
     Route: 065
     Dates: start: 20111215, end: 20120120
  14. LORAZEPAM [Concomitant]
     Indication: NAUSEA
     Route: 065
     Dates: start: 20120101, end: 20121226
  15. LORAZEPAM [Concomitant]
     Indication: INSOMNIA
  16. BENADRYL (UNITED STATES) [Concomitant]
     Indication: ANTIALLERGIC THERAPY
     Route: 065
     Dates: start: 20120108
  17. BENADRYL (UNITED STATES) [Concomitant]
     Route: 065
     Dates: start: 20111215, end: 20111215
  18. DEXTROMETHORPHAN [Concomitant]
     Indication: COUGH
     Route: 065
     Dates: start: 20120106
  19. DEXTROMETHORPHAN [Concomitant]
     Indication: PNEUMONIA HAEMOPHILUS
  20. AZITHROMYCIN [Concomitant]
     Indication: INFECTION
     Route: 065
     Dates: start: 20120101, end: 20120105
  21. COMPAZINE [Concomitant]
     Indication: NAUSEA
     Route: 065
     Dates: start: 20111215
  22. COMPAZINE [Concomitant]
     Route: 065
     Dates: start: 20111216, end: 20111216
  23. ZOFRAN [Concomitant]
     Route: 065
     Dates: start: 20111222
  24. ENSURE [Concomitant]
     Indication: DECREASED APPETITE
     Route: 065
     Dates: start: 20120109, end: 20120612
  25. ENSURE [Concomitant]
     Indication: WEIGHT DECREASED
  26. COLACE [Concomitant]
     Indication: CONSTIPATION
     Route: 065
     Dates: start: 201112
  27. PEGFILGRASTIM [Concomitant]
     Indication: INFECTION
     Route: 065
     Dates: start: 20111216, end: 20111216
  28. VITAMIN K [Concomitant]
     Indication: HAEMORRHAGE
     Route: 065
     Dates: start: 20120118, end: 20120118
  29. PRILOSEC [Concomitant]
     Route: 065
     Dates: start: 20120125

REACTIONS (4)
  - Hepatotoxicity [Recovered/Resolved]
  - Alanine aminotransferase increased [Recovered/Resolved]
  - Sepsis [Recovered/Resolved]
  - Hypotension [Recovered/Resolved]
